FAERS Safety Report 9183867 (Version 1)
Quarter: 2013Q1

REPORT INFORMATION
  Report Type: Spontaneous
  Country: US (occurrence: US)
  Receive Date: 20130322
  Receipt Date: 20130322
  Transmission Date: 20140127
  Serious: No
  Sender: FDA-Public Use
  Company Number: US-BRISTOL-MYERS SQUIBB COMPANY-16646630

PATIENT
  Age: 68 Year
  Sex: Male

DRUGS (2)
  1. ERBITUX [Suspect]
     Dates: start: 201108
  2. TAXOL [Suspect]

REACTIONS (5)
  - Dry skin [Unknown]
  - Onychomadesis [Unknown]
  - Skin fissures [Unknown]
  - Rhinorrhoea [Unknown]
  - Lacrimation increased [Unknown]
